FAERS Safety Report 6572296-1 (Version None)
Quarter: 2010Q1

REPORT INFORMATION
  Report Type: 
  Country: None (occurrence: None)
  Receive Date: 20100201
  Receipt Date: 20100118
  Transmission Date: 20100710
  Serious: Yes (Death)
  Sender: FDA-Public Use
  Company Number: DSA_42385_2010

PATIENT
  Age: 84 Year
  Sex: Female

DRUGS (2)
  1. DILTIAZEM HCL [Suspect]
     Indication: DRUG USE FOR UNKNOWN INDICATION
     Dosage: (DF PARENTERAL)
     Route: 051
  2. CARDIAC GLYCOSIDES [Suspect]
     Indication: DRUG USE FOR UNKNOWN INDICATION
     Dosage: (DF PARENTERAL)
     Route: 051

REACTIONS (1)
  - POISONING [None]
